FAERS Safety Report 5814357-8 (Version None)
Quarter: 2008Q3

REPORT INFORMATION
  Report Type: 
  Country: None (occurrence: None)
  Receive Date: 20080717
  Receipt Date: 20080707
  Transmission Date: 20090109
  Serious: Yes (Other)
  Sender: FDA-Public Use
  Company Number: US-SANOFI-SYNTHELABO-A03200802693

PATIENT
  Age: 54 Year
  Sex: Male

DRUGS (1)
  1. UROXATRAL [Suspect]
     Indication: BENIGN PROSTATIC HYPERPLASIA
     Dosage: UNK
     Route: 048

REACTIONS (1)
  - RETINAL DETACHMENT [None]
